FAERS Safety Report 6818000-0 (Version None)
Quarter: 2010Q3

REPORT INFORMATION
  Report Type: 
  Country: None (occurrence: None)
  Receive Date: 20100706
  Receipt Date: 20100628
  Transmission Date: 20110219
  Serious: Yes (Other)
  Sender: FDA-Public Use
  Company Number: GXKR2010DE07256

PATIENT
  Sex: Male

DRUGS (1)
  1. RAMIPRIL [Suspect]
     Route: 048

REACTIONS (2)
  - ANAEMIA MEGALOBLASTIC [None]
  - BONE MARROW FAILURE [None]
